FAERS Safety Report 22604310 (Version 2)
Quarter: 2023Q2

REPORT INFORMATION
  Report Type: Spontaneous
  Country: AR (occurrence: AR)
  Receive Date: 20230615
  Receipt Date: 20230627
  Transmission Date: 20230721
  Serious: Yes (Other)
  Sender: FDA-Public Use
  Company Number: AR-GLAXOSMITHKLINE-AR2023AMR078412

PATIENT

DRUGS (1)
  1. BENLYSTA [Suspect]
     Active Substance: BELIMUMAB
     Indication: Systemic lupus erythematosus
     Dosage: UNK,120 MG-400 MG
     Route: 042
     Dates: start: 20220606, end: 20230508

REACTIONS (12)
  - Renal failure [Unknown]
  - Cardiac failure [Unknown]
  - Renal disorder [Unknown]
  - Feeling abnormal [Unknown]
  - Anaemia [Unknown]
  - Gait inability [Unknown]
  - Peripheral swelling [Unknown]
  - Illness [Unknown]
  - Asthenia [Unknown]
  - Gastritis [Unknown]
  - Malaise [Not Recovered/Not Resolved]
  - Product dose omission issue [Unknown]
